FAERS Safety Report 20417054 (Version 3)
Quarter: 2022Q1

REPORT INFORMATION
  Report Type: Report from Study
  Country: FR (occurrence: FR)
  Receive Date: 20220202
  Receipt Date: 20220214
  Transmission Date: 20220423
  Serious: Yes (Death, Other)
  Sender: FDA-Public Use
  Company Number: FR-PFIZER INC-202200150738

PATIENT
  Age: 27 Year
  Sex: Male

DRUGS (5)
  1. PREGABALIN [Suspect]
     Active Substance: PREGABALIN
     Dosage: UNK
  2. CLONAZEPAM [Suspect]
     Active Substance: CLONAZEPAM
  3. DOXYLAMINE [Suspect]
     Active Substance: DOXYLAMINE
  4. METHADONE [Suspect]
     Active Substance: METHADONE HYDROCHLORIDE
  5. LEVAMISOLE [Suspect]
     Active Substance: LEVAMISOLE

REACTIONS (3)
  - Intentional product misuse [Fatal]
  - Poisoning [Fatal]
  - Drug level above therapeutic [Unknown]
